FAERS Safety Report 5830816-6 (Version None)
Quarter: 2008Q3

REPORT INFORMATION
  Report Type: 
  Country: None (occurrence: None)
  Receive Date: 20080801
  Receipt Date: 20071212
  Transmission Date: 20090109
  Serious: No
  Sender: FDA-Public Use
  Company Number: US-BRISTOL-MYERS SQUIBB COMPANY-14012165

PATIENT
  Age: 74 Year
  Sex: Female
  Weight: 92 kg

DRUGS (12)
  1. COUMADIN [Suspect]
     Indication: PROPHYLAXIS
     Route: 048
     Dates: start: 20071112
  2. ATENOLOL [Concomitant]
  3. ACTOS [Concomitant]
  4. DIOVAN [Concomitant]
  5. SYNTHROID [Concomitant]
  6. LASIX [Concomitant]
  7. GLUCOTROL [Concomitant]
  8. NITREK [Concomitant]
  9. VYTORIN [Concomitant]
  10. POTASSIUM CHLORIDE [Concomitant]
  11. ZYRTEC [Concomitant]
  12. VICODIN [Concomitant]

REACTIONS (1)
  - PRURITUS GENERALISED [None]
